FAERS Safety Report 4690297-5 (Version None)
Quarter: 2005Q2

REPORT INFORMATION
  Report Type: 
  Country: None (occurrence: None)
  Receive Date: 20050615
  Receipt Date: 20050603
  Transmission Date: 20051028
  Serious: Yes (Other)
  Sender: FDA-Public Use
  Company Number: GB-GLAXOSMITHKLINE-B0383425A

PATIENT
  Sex: Female

DRUGS (1)
  1. IMIGRAN [Suspect]
     Dosage: 50MG SIX TIMES PER DAY
     Route: 048

REACTIONS (2)
  - DEPENDENCE [None]
  - DRUG DEPENDENCE [None]
